FAERS Safety Report 6189694-0 (Version None)
Quarter: 2009Q2

REPORT INFORMATION
  Report Type: 
  Country: None (occurrence: None)
  Receive Date: 20090514
  Receipt Date: 20090507
  Transmission Date: 20091009
  Serious: Yes (Other)
  Sender: FDA-Public Use
  Company Number: AU-NOVOPROD-282961

PATIENT
  Age: 12 Year
  Sex: Female
  Weight: 28 kg

DRUGS (2)
  1. NORDITROPIN [Suspect]
     Indication: BODY HEIGHT BELOW NORMAL
     Dosage: .75 MG, QD
     Route: 058
     Dates: start: 20080505, end: 20081219
  2. EPILIM [Concomitant]
     Dosage: 200 MG, QD
     Route: 048
     Dates: start: 19990129

REACTIONS (3)
  - CONDITION AGGRAVATED [None]
  - DYSPNOEA [None]
  - OSTEOCHONDROMA [None]
